FAERS Safety Report 6083816-8 (Version None)
Quarter: 2009Q1

REPORT INFORMATION
  Report Type: 
  Country: None (occurrence: None)
  Receive Date: 20090217
  Receipt Date: 20090202
  Transmission Date: 20090719
  Serious: Yes (Death, Hospitalization, Other)
  Sender: FDA-Public Use
  Company Number: 165285

PATIENT
  Age: 68 Year
  Sex: Female

DRUGS (5)
  1. PENTAMIDINE ISETHIONATE [Suspect]
     Indication: PNEUMOCYSTIS JIROVECI PNEUMONIA
  2. HUMIRA [Suspect]
     Indication: RHEUMATOID ARTHRITIS
     Dosage: 40 MG, ^1 IN 2 WK^, SUBCUTANEOUS
     Route: 058
     Dates: start: 20070701, end: 20080819
  3. METHOTREXATE [Concomitant]
  4. FENTANYL CITRATE INJECTION, USP, 50 MCG (0.05 MG) FENTANYL/ML (FENTANY [Concomitant]
  5. PREDNISONE [Concomitant]

REACTIONS (13)
  - FEEDING TUBE COMPLICATION [None]
  - GASTRITIS EROSIVE [None]
  - GASTROINTESTINAL HAEMORRHAGE [None]
  - HAEMOGLOBIN DECREASED [None]
  - HIATUS HERNIA [None]
  - HYPERKALAEMIA [None]
  - INJURY [None]
  - OESOPHAGEAL CANDIDIASIS [None]
  - OXYGEN SATURATION ABNORMAL [None]
  - PNEUMOCYSTIS JIROVECI PNEUMONIA [None]
  - RENAL FAILURE ACUTE [None]
  - RESPIRATORY ARREST [None]
  - RHEUMATOID ARTHRITIS [None]
